FAERS Safety Report 8030359-8 (Version None)
Quarter: 2012Q1

REPORT INFORMATION
  Report Type: 
  Country: None (occurrence: None)
  Receive Date: 20120109
  Receipt Date: 20120109
  Transmission Date: 20120608
  Serious: Yes (Other)
  Sender: FDA-Public Use
  Company Number: None

PATIENT
  Age: 64 Year
  Sex: Male
  Weight: 90.718 kg

DRUGS (2)
  1. FORTEO [Suspect]
     Indication: OSTEOPOROSIS
     Dates: start: 20090101, end: 20120101
  2. ANDROGEL PUMP [Concomitant]
     Dates: start: 20070101, end: 20120101

REACTIONS (1)
  - ARTERIOSCLEROSIS CORONARY ARTERY [None]
